FAERS Safety Report 11779620 (Version 1)
Quarter: 2015Q4

REPORT INFORMATION
  Report Type: Spontaneous
  Country: NL (occurrence: NL)
  Receive Date: 20151125
  Receipt Date: 20151125
  Transmission Date: 20160304
  Serious: Yes (Other)
  Sender: FDA-Public Use
  Company Number: NL-TEVA-610320ISR

PATIENT
  Age: 64 Year
  Sex: Male
  Weight: 70 kg

DRUGS (6)
  1. PANTOPRAZOL TABLET MSR 40MG [Concomitant]
     Active Substance: PANTOPRAZOLE SODIUM
     Dosage: ONCE DAILY ONE PIECE
     Route: 048
     Dates: start: 2013
  2. SIMVASTATINE [Concomitant]
     Active Substance: SIMVASTATIN
     Dosage: ONCE DAILY ONE PIECE, ADDITIONAL INFO: SIMVASTATIN
     Route: 048
     Dates: start: 2013
  3. OXALIPLATINE INFOPL CONC 5MG/ML [Suspect]
     Active Substance: OXALIPLATIN
     Indication: COLON CANCER
     Dosage: ONCE PER 3 WEEKS DOSAGE OF 130MG/M2
     Route: 042
     Dates: start: 20150813
  4. SELOKEEN ZOC  50 TABLET MGA  47,5MG [Concomitant]
     Active Substance: METOPROLOL TARTRATE
     Dosage: ONCE DAILY ONE PIECE
     Route: 048
     Dates: start: 2013
  5. ASCAL CARDIO SACHET 100MG [Concomitant]
     Dosage: ONCE DAILY ONE PIECE
     Route: 048
     Dates: start: 2013, end: 20151009
  6. COLECALCIFEROL CAPSULE  400IE [Concomitant]
     Dosage: ONCE DAILY ONE PIECE
     Route: 048
     Dates: start: 2013

REACTIONS (3)
  - Dysarthria [Recovering/Resolving]
  - Dysstasia [Recovering/Resolving]
  - Cerebrovascular accident [Recovering/Resolving]

NARRATIVE: CASE EVENT DATE: 20150903
